FAERS Safety Report 22259628 (Version 1)
Quarter: 2023Q2

REPORT INFORMATION
  Report Type: Spontaneous
  Country: US (occurrence: US)
  Receive Date: 20230427
  Receipt Date: 20230427
  Transmission Date: 20230721
  Serious: No
  Sender: FDA-Public Use
  Company Number: US-BEH-2023157902

PATIENT
  Sex: Female

DRUGS (1)
  1. HIZENTRA [Suspect]
     Active Substance: HUMAN IMMUNOGLOBULIN G
     Indication: Immunodeficiency common variable
     Dosage: 20 GRAM, QOW
     Route: 058
     Dates: start: 202106

REACTIONS (5)
  - Infusion site swelling [Unknown]
  - Infusion site pruritus [Unknown]
  - Joint swelling [Unknown]
  - Peripheral swelling [Unknown]
  - Peripheral swelling [Unknown]
